FAERS Safety Report 12723523 (Version 4)
Quarter: 2016Q4

REPORT INFORMATION
  Report Type: Spontaneous
  Country: US (occurrence: US)
  Receive Date: 20160908
  Receipt Date: 20161004
  Transmission Date: 20170207
  Serious: Yes (Other)
  Sender: FDA-Public Use
  Company Number: US-PFIZER INC-2016421205

PATIENT
  Sex: Female

DRUGS (1)
  1. GENOTROPIN MQ [Suspect]
     Active Substance: SOMATROPIN
     Dosage: 0.2 MG, UNK

REACTIONS (6)
  - Feeling abnormal [Recovered/Resolved]
  - Arthritis [Recovered/Resolved]
  - Discomfort [Recovered/Resolved]
  - Drug effect incomplete [Recovered/Resolved]
  - Product quality issue [Recovered/Resolved]
  - Paraesthesia [Recovered/Resolved]
